FAERS Safety Report 5964153-6 (Version None)
Quarter: 2008Q4

REPORT INFORMATION
  Report Type: 
  Country: None (occurrence: None)
  Receive Date: 20081124
  Receipt Date: 20081117
  Transmission Date: 20090506
  Serious: No
  Sender: FDA-Public Use
  Company Number: US-B.I. PHARMACEUTICALS,INC./RIDGEFIELD-2008-BP-16482BP

PATIENT
  Age: 88 Year
  Sex: Female
  Weight: 77 kg

DRUGS (2)
  1. SPIRIVA [Suspect]
     Dates: end: 20081028
  2. ALBUTEROL [Concomitant]

REACTIONS (1)
  - TREMOR [None]
